FAERS Safety Report 10801184 (Version 3)
Quarter: 2015Q1

REPORT INFORMATION
  Report Type: Spontaneous
  Country: JP (occurrence: JP)
  Receive Date: 20150217
  Receipt Date: 20150320
  Transmission Date: 20150721
  Serious: Yes (Life-Threatening, Other)
  Sender: FDA-Public Use
  Company Number: JP-PFIZER INC-2014350716

PATIENT
  Age: 54 Year
  Sex: Male
  Weight: 55 kg

DRUGS (57)
  1. CAMPTO [Suspect]
     Active Substance: IRINOTECAN
     Dosage: 92.6 MG/M2, 1X/DAY, 150MG/BODY
     Route: 041
     Dates: start: 20140805, end: 20140805
  2. ELPLAT [Suspect]
     Active Substance: OXALIPLATIN
     Dosage: 80.3 MG/M2, 1X/DAY (130 MG/BODY) ONCE A DAY
     Route: 041
     Dates: start: 20140722, end: 20140722
  3. ELPLAT [Suspect]
     Active Substance: OXALIPLATIN
     Dosage: 61.8 MG/M2 (100 MG), CYCLIC
     Route: 041
     Dates: start: 20140826, end: 20140826
  4. ELPLAT [Suspect]
     Active Substance: OXALIPLATIN
     Dosage: 100 MG, CYCLIC
     Route: 041
     Dates: start: 20141014, end: 20141014
  5. 5-FU [Suspect]
     Active Substance: FLUOROURACIL
     Dosage: 370.6 MG/M2, CYCLIC 600 MG/BODY
     Route: 040
     Dates: start: 20140805, end: 20140805
  6. 5-FU [Suspect]
     Active Substance: FLUOROURACIL
     Dosage: 370.6 MG/M2, CYCLIC 600 MG/BODY
     Route: 040
     Dates: start: 20140826, end: 20140826
  7. ALOXI [Concomitant]
     Active Substance: PALONOSETRON HYDROCHLORIDE
     Dosage: UNK
     Dates: start: 20140619, end: 20140619
  8. CRAVIT [Concomitant]
     Active Substance: LEVOFLOXACIN
     Dosage: UNK
     Dates: start: 20141021, end: 20141023
  9. ELPLAT [Suspect]
     Active Substance: OXALIPLATIN
     Dosage: 100 MG, CYCLIC
     Route: 041
     Dates: start: 20140909, end: 20140909
  10. ELPLAT [Suspect]
     Active Substance: OXALIPLATIN
     Dosage: 100 MG, CYCLIC
     Route: 041
     Dates: start: 20141118, end: 20141118
  11. 5-FU [Suspect]
     Active Substance: FLUOROURACIL
     Indication: PANCREATIC CARCINOMA
     Dosage: 370.6 MG/M2, CYCLIC 600 MG/BODY
     Route: 040
     Dates: start: 20140619, end: 20140619
  12. 5-FU [Suspect]
     Active Substance: FLUOROURACIL
     Dosage: 2347.1 MG/M2, CYCLIC DAY 1-2, 3800 MG/BODY
     Route: 041
     Dates: start: 20140707, end: 20140707
  13. 5-FU [Suspect]
     Active Substance: FLUOROURACIL
     Dosage: 2347.1 MG/M2, CYCLIC DAY 1-2, 3800 MG/BODY
     Route: 041
     Dates: start: 20141118, end: 20141118
  14. EMEND [Concomitant]
     Active Substance: APREPITANT
     Dosage: UNK
     Dates: start: 20140619, end: 20141218
  15. BROTIZOLAM [Concomitant]
     Active Substance: BROTIZOLAM
     Dosage: UNK
     Dates: start: 20140619, end: 20140810
  16. HALCION [Concomitant]
     Active Substance: TRIAZOLAM
     Dosage: UNK
     Dates: start: 20140811, end: 20141218
  17. PL [Concomitant]
     Active Substance: ACETAMINOPHEN\CAFFEINE\PROMETHAZINE\SALICYLAMIDE
     Dosage: UNK
     Dates: start: 20141021, end: 20141023
  18. CAMPTO [Suspect]
     Active Substance: IRINOTECAN
     Dosage: 92.6 MG/M2, 1X/DAY, 150MG/BODY
     Route: 041
     Dates: start: 20140707, end: 20140707
  19. 5-FU [Suspect]
     Active Substance: FLUOROURACIL
     Dosage: 2347.1 MG/M2, CYCLIC DAY 1-2, 3800 MG/BODY
     Route: 041
     Dates: start: 20140929, end: 20140929
  20. 5-FU [Suspect]
     Active Substance: FLUOROURACIL
     Dosage: 370.6 MG/M2, CYCLIC 600 MG/BODY
     Route: 040
     Dates: start: 20141014, end: 20141014
  21. 5-FU [Suspect]
     Active Substance: FLUOROURACIL
     Dosage: 370.6 MG/M2, CYCLIC 600 MG/BODY
     Route: 040
     Dates: start: 20141028, end: 20141028
  22. 5-FU [Suspect]
     Active Substance: FLUOROURACIL
     Dosage: 370.6 MG/M2, CYCLIC 600 MG/BODY
     Route: 040
     Dates: start: 20141118, end: 20141118
  23. 5-FU [Suspect]
     Active Substance: FLUOROURACIL
     Dosage: 2347.1 MG/M2, CYCLIC DAY 1-2, 3800 MG/BODY
     Route: 041
     Dates: start: 20141202, end: 20141202
  24. 5-FU [Suspect]
     Active Substance: FLUOROURACIL
     Dosage: 2347.1 MG/M2, CYCLIC DAY 1-2, 3800 MG/BODY
     Route: 041
     Dates: start: 20141216, end: 20141216
  25. CAMPTO [Suspect]
     Active Substance: IRINOTECAN
     Indication: PANCREATIC CARCINOMA
     Dosage: 123.5 MG/M2, 1X/DAY (200MG/BODY)
     Route: 041
     Dates: start: 20140619, end: 20140619
  26. ELPLAT [Suspect]
     Active Substance: OXALIPLATIN
     Dosage: 100 MG, CYCLIC
     Route: 041
     Dates: start: 20141216, end: 20141216
  27. 5-FU [Suspect]
     Active Substance: FLUOROURACIL
     Dosage: 370.6 MG/M2, CYCLIC 600 MG/BODY
     Route: 040
     Dates: start: 20140929, end: 20140929
  28. DEXART [Concomitant]
     Active Substance: DEXAMETHASONE SODIUM PHOSPHATE
     Dosage: UNK
     Dates: start: 20140619, end: 20141216
  29. BUSCOPAN [Concomitant]
     Active Substance: BUTYLSCOPOLAMINE BROMIDE
     Dosage: UNK
     Dates: start: 20140619, end: 20141216
  30. 5-FU [Suspect]
     Active Substance: FLUOROURACIL
     Dosage: 370.6 MG/M2, CYCLIC 600 MG/BODY
     Route: 040
     Dates: start: 20140707, end: 20140707
  31. 5-FU [Suspect]
     Active Substance: FLUOROURACIL
     Dosage: 370.6 MG/M2, CYCLIC 600 MG/BODY
     Route: 040
     Dates: start: 20141202, end: 20141202
  32. 5-FU [Suspect]
     Active Substance: FLUOROURACIL
     Dosage: 370.6 MG/M2, CYCLIC 600 MG/BODY
     Route: 040
     Dates: start: 20141216, end: 20141216
  33. BETAMETHASONE [Concomitant]
     Active Substance: BETAMETHASONE
     Dosage: UNK
     Dates: start: 20140619, end: 20141218
  34. ELPLAT [Suspect]
     Active Substance: OXALIPLATIN
     Dosage: 80.3 MG/M2, 1X/DAY (130 MG/BODY) ONCE A DAY
     Route: 041
     Dates: start: 20140805, end: 20140805
  35. ELPLAT [Suspect]
     Active Substance: OXALIPLATIN
     Dosage: 100 MG, CYCLIC
     Route: 041
     Dates: start: 20141202, end: 20141202
  36. 5-FU [Suspect]
     Active Substance: FLUOROURACIL
     Dosage: 2347.1 MG/M2, CYCLIC DAY 1-2, 3800 MG/BODY
     Route: 041
     Dates: start: 20140619, end: 20140619
  37. 5-FU [Suspect]
     Active Substance: FLUOROURACIL
     Dosage: 2347.1 MG/M2, CYCLIC DAY 1-2, 3800 MG/BODY
     Route: 041
     Dates: start: 20140722, end: 20140722
  38. 5-FU [Suspect]
     Active Substance: FLUOROURACIL
     Dosage: 2347.1 MG/M2, CYCLIC DAY 1-2, 3800 MG/BODY
     Route: 041
     Dates: start: 20140805, end: 20140805
  39. 5-FU [Suspect]
     Active Substance: FLUOROURACIL
     Dosage: 370.6 MG/M2, CYCLIC 600 MG/BODY
     Route: 040
     Dates: start: 20140909, end: 20140909
  40. 5-FU [Suspect]
     Active Substance: FLUOROURACIL
     Dosage: 2347.1 MG/M2, CYCLIC DAY 1-2, 3800 MG/BODY
     Route: 041
     Dates: start: 20140909, end: 20140909
  41. 5-FU [Suspect]
     Active Substance: FLUOROURACIL
     Dosage: 2347.1 MG/M2, CYCLIC DAY 1-2, 3800 MG/BODY
     Route: 041
     Dates: start: 20141028, end: 20141028
  42. NEXIUM [Concomitant]
     Active Substance: ESOMEPRAZOLE MAGNESIUM
     Dosage: UNK
     Dates: start: 20140619, end: 20141218
  43. BAKTAR [Concomitant]
     Active Substance: SULFAMETHOXAZOLE\TRIMETHOPRIM
     Dosage: UNK
     Dates: start: 20140704, end: 20140717
  44. CAMPTO [Suspect]
     Active Substance: IRINOTECAN
     Dosage: 92.6 MG/M2, 1X/DAY, 150MG/BODY
     Route: 041
     Dates: start: 20140722, end: 20140722
  45. ELPLAT [Suspect]
     Active Substance: OXALIPLATIN
     Dosage: 80.3 MG/M2, 1X/DAY (130 MG/BODY) ONCE A DAY
     Route: 041
     Dates: start: 20140707, end: 20140707
  46. ELPLAT [Suspect]
     Active Substance: OXALIPLATIN
     Dosage: 100 MG, CYCLIC
     Route: 041
     Dates: start: 20141028, end: 20141028
  47. 5-FU [Suspect]
     Active Substance: FLUOROURACIL
     Dosage: 2347.1 MG/M2, CYCLIC DAY 1-2, 3800 MG/BODY
     Route: 041
     Dates: start: 20140826, end: 20140826
  48. 5-FU [Suspect]
     Active Substance: FLUOROURACIL
     Dosage: 2347.1 MG/M2, CYCLIC DAY 1-2, 3800 MG/BODY
     Route: 041
     Dates: start: 20141014, end: 20141014
  49. LEVOFOLINATE CALCIUM [Concomitant]
     Active Substance: LEUCOVORIN CALCIUM
     Indication: PANCREATIC CARCINOMA
     Dosage: 185.3 MG/M2, CYCLIC 300MG/BODY
     Dates: start: 20140619, end: 20141216
  50. NOVAMIN [Concomitant]
     Active Substance: PROCHLORPERAZINE MALEATE
     Dosage: UNK
     Dates: start: 20140619, end: 20140710
  51. LAC-B [Concomitant]
     Active Substance: BIFIDOBACTERIUM SPP.
     Dosage: UNK
     Dates: start: 20140711, end: 20140715
  52. ELPLAT [Suspect]
     Active Substance: OXALIPLATIN
     Indication: PANCREATIC CARCINOMA
     Dosage: 80.3 MG/M2, 1X/DAY (130 MG/BODY) ONCE A DAY
     Route: 041
     Dates: start: 20140619, end: 20140619
  53. ELPLAT [Suspect]
     Active Substance: OXALIPLATIN
     Dosage: 100 MG, CYCLIC
     Route: 041
     Dates: start: 20140929, end: 20140929
  54. 5-FU [Suspect]
     Active Substance: FLUOROURACIL
     Dosage: 370.6 MG/M2, CYCLIC 600 MG/BODY
     Route: 040
     Dates: start: 20140722, end: 20140722
  55. DUROTEP [Concomitant]
     Active Substance: FENTANYL
     Dosage: UNK
     Dates: start: 20140619, end: 20140806
  56. ELENTAL [Concomitant]
     Dosage: UNK
     Dates: start: 20140901, end: 20141218
  57. MEDICON [Concomitant]
     Active Substance: DEXTROMETHORPHAN HYDROBROMIDE
     Dosage: UNK
     Dates: start: 20141028, end: 20141103

REACTIONS (3)
  - Neutrophil count decreased [Recovering/Resolving]
  - Malaise [Recovering/Resolving]
  - Diarrhoea [Recovering/Resolving]

NARRATIVE: CASE EVENT DATE: 20140703
